FAERS Safety Report 7689283-2 (Version None)
Quarter: 2011Q3

REPORT INFORMATION
  Report Type: 
  Country: None (occurrence: None)
  Receive Date: 20110817
  Receipt Date: 20110810
  Transmission Date: 20111222
  Serious: Yes (Other)
  Sender: FDA-Public Use
  Company Number: DE-PFIZER INC-2011118785

PATIENT
  Age: 17 Month
  Sex: Male
  Weight: 10.2 kg

DRUGS (9)
  1. LASIX [Concomitant]
     Dosage: 4 X 2 MG
     Route: 042
     Dates: start: 20110518
  2. METHYLPREDNISOLONE ACETATE [Concomitant]
     Dosage: 3X 6 MG
     Route: 042
     Dates: start: 20110524
  3. ILOMEDIN [Concomitant]
     Dosage: 6 X 2.5  UG
     Route: 055
     Dates: start: 20110527
  4. OMEPRAZOLE [Concomitant]
     Dosage: 2X 10 MG
     Route: 042
     Dates: start: 20110527, end: 20110530
  5. KETAMINE [Concomitant]
     Dosage: 0.2 MG/KG/H
     Dates: start: 20110526, end: 20110528
  6. KEPINOL [Concomitant]
     Indication: PROPHYLAXIS
     Dosage: 2X 20 MG, 2X/WEEK
     Route: 048
  7. OXYGEN [Concomitant]
     Dosage: UNK
     Dates: start: 20110101
  8. REVATIO [Suspect]
     Indication: PULMONARY ARTERIAL HYPERTENSION
     Dosage: 0.125 MG/KG, UNK
     Dates: start: 20110527, end: 20110527
  9. DOBUTAMINE [Concomitant]
     Indication: SEDATION
     Dosage: 5  UG/KG/MIN
     Dates: start: 20110526, end: 20110528

REACTIONS (2)
  - HYPOTENSION [None]
  - MEAN ARTERIAL PRESSURE DECREASED [None]
